FAERS Safety Report 5290858-9 (Version None)
Quarter: 2007Q2

REPORT INFORMATION
  Report Type: 
  Country: None (occurrence: None)
  Receive Date: 20070409
  Receipt Date: 20070329
  Transmission Date: 20071010
  Serious: Yes (Hospitalization)
  Sender: FDA-Public Use
  Company Number: FR-PFIZER INC-2007024916

PATIENT
  Age: 80 Year
  Sex: Male
  Weight: 73 kg

DRUGS (9)
  1. ALDACTONE [Suspect]
     Route: 048
  2. FUROSEMIDE [Interacting]
     Route: 048
  3. RILMENIDINE [Interacting]
     Route: 048
  4. NIFEDIPINE [Interacting]
     Route: 048
  5. LOSARTAN POSTASSIUM [Concomitant]
     Dosage: DAILY DOSE:50MG
     Route: 048
  6. OMIX [Concomitant]
     Dosage: DAILY DOSE:.4MG
     Route: 048
  7. CARBIMAZOLE [Concomitant]
     Dosage: DAILY DOSE:5MG
  8. ARANESP [Concomitant]
     Dosage: DAILY DOSE:20MCG
  9. GLICLAZIDE [Concomitant]
     Dosage: DAILY DOSE:60MG

REACTIONS (5)
  - BLOOD CREATININE INCREASED [None]
  - DRUG INTERACTION [None]
  - HYPONATRAEMIA [None]
  - HYPOTENSION [None]
  - SYNCOPE [None]
